FAERS Safety Report 8484462-9 (Version None)
Quarter: 2012Q3

REPORT INFORMATION
  Report Type: 
  Country: None (occurrence: None)
  Receive Date: 20120703
  Receipt Date: 20120628
  Transmission Date: 20120928
  Serious: Yes (Disabling, Other)
  Sender: FDA-Public Use
  Company Number: PHHY2012BR045523

PATIENT
  Sex: Male

DRUGS (3)
  1. CARVEDILOL [Concomitant]
     Dosage: 0.5 DF (HALF TABLET AT MORNING AND HALF TABLET AT NIGHT), BID
     Dates: start: 20090201
  2. DIURETICS [Concomitant]
     Dates: start: 20090201
  3. DIOVAN [Suspect]
     Indication: HYPERTENSION
     Dosage: 2 DF, QD (AT 2 PM)

REACTIONS (6)
  - CEREBRAL HAEMORRHAGE [None]
  - CEREBROVASCULAR ACCIDENT [None]
  - VISUAL ACUITY REDUCED [None]
  - STRABISMUS [None]
  - DIABETES MELLITUS [None]
  - HEMIPLEGIA [None]
